FAERS Safety Report 4899899-4 (Version None)
Quarter: 2006Q1

REPORT INFORMATION
  Report Type: 
  Country: None (occurrence: None)
  Receive Date: 20060118
  Receipt Date: 20050907
  Transmission Date: 20060701
  Serious: No
  Sender: FDA-Public Use
  Company Number: 2005001758

PATIENT
  Age: 65 Year
  Sex: Male

DRUGS (6)
  1. TARCEVA [Suspect]
     Indication: NON-SMALL CELL LUNG CANCER
     Dosage: 150 MG (QD), ORAL
     Route: 048
  2. TOPROL-XL [Concomitant]
  3. PREDNISONE TAB [Concomitant]
  4. DEXAMETHASONE [Concomitant]
  5. DILAUDID [Concomitant]
  6. METHADONE HCL [Concomitant]

REACTIONS (4)
  - HEADACHE [None]
  - MALIGNANT NEOPLASM PROGRESSION [None]
  - METASTASES TO CENTRAL NERVOUS SYSTEM [None]
  - VISION BLURRED [None]
